APPROVED DRUG PRODUCT: MEDROL ACETATE
Active Ingredient: METHYLPREDNISOLONE ACETATE
Strength: 1%
Dosage Form/Route: OINTMENT;TOPICAL
Application: N012421 | Product #002
Applicant: PHARMACIA AND UPJOHN CO
Approved: Approved Prior to Jan 1, 1982 | RLD: No | RS: No | Type: DISCN